FAERS Safety Report 7677976-2 (Version None)
Quarter: 2011Q3

REPORT INFORMATION
  Report Type: 
  Country: None (occurrence: None)
  Receive Date: 20110811
  Receipt Date: 20110810
  Transmission Date: 20111222
  Serious: Yes (Other)
  Sender: FDA-Public Use
  Company Number: CA-GLAXOSMITHKLINE-A0906377A

PATIENT
  Sex: Female

DRUGS (11)
  1. XELODA [Suspect]
     Indication: PRODUCT USED FOR UNKNOWN INDICATION
     Dosage: 650MG TWICE PER DAY
     Route: 065
  2. UNSPECIFIED MEDICATION [Concomitant]
     Indication: BONE NEOPLASM MALIGNANT
     Route: 042
  3. EFFEXOR [Concomitant]
     Route: 065
  4. MORPHINE [Concomitant]
     Route: 065
  5. VITAMIN B6 [Concomitant]
     Route: 065
  6. VITAMIN D [Concomitant]
     Route: 065
  7. PROCHLORPERAZINE [Concomitant]
     Route: 065
  8. TYKERB [Suspect]
     Indication: BREAST CANCER METASTATIC
     Dosage: 1250MG PER DAY
     Route: 048
     Dates: start: 20110107
  9. CALCIUM CARBONATE [Concomitant]
     Route: 065
  10. MULTI-VITAMIN [Concomitant]
     Route: 065
  11. CLONAZEPAM [Concomitant]
     Route: 065

REACTIONS (9)
  - INSOMNIA [None]
  - SKIN CHAPPED [None]
  - DERMATITIS ACNEIFORM [None]
  - BLOOD BILIRUBIN INCREASED [None]
  - HEPATIC LESION [None]
  - RASH PRURITIC [None]
  - PALMAR-PLANTAR ERYTHRODYSAESTHESIA SYNDROME [None]
  - DIARRHOEA [None]
  - ERYTHEMA [None]
